FAERS Safety Report 6088787-6 (Version None)
Quarter: 2009Q1

REPORT INFORMATION
  Report Type: 
  Country: None (occurrence: None)
  Receive Date: 20090219
  Receipt Date: 20090204
  Transmission Date: 20090719
  Serious: Yes (Death, Hospitalization)
  Sender: FDA-Public Use
  Company Number: 2008S1000391

PATIENT
  Age: 86 Year
  Sex: Female

DRUGS (1)
  1. CUBICIN [Suspect]
     Indication: INFECTION
     Dosage: 6 MG/KG/Q24H; IV
     Route: 042
     Dates: start: 20081011, end: 20081013

REACTIONS (5)
  - ASTHENIA [None]
  - MULTI-ORGAN FAILURE [None]
  - MUSCLE ATROPHY [None]
  - MYOGLOBIN BLOOD INCREASED [None]
  - RENAL FAILURE ACUTE [None]
